FAERS Safety Report 7650654-1 (Version None)
Quarter: 2011Q3

REPORT INFORMATION
  Report Type: 
  Country: None (occurrence: None)
  Receive Date: 20110802
  Receipt Date: 20110725
  Transmission Date: 20111222
  Serious: Yes (Other)
  Sender: FDA-Public Use
  Company Number: NL-JNJFOC-20110709694

PATIENT
  Sex: Male

DRUGS (3)
  1. CONCERTA [Suspect]
     Route: 048
  2. CONCERTA [Suspect]
     Indication: ATTENTION DEFICIT/HYPERACTIVITY DISORDER
     Route: 048
  3. CONCERTA [Suspect]
     Route: 048
     Dates: start: 20110501

REACTIONS (2)
  - PSYCHOTIC DISORDER [None]
  - SEXUAL DYSFUNCTION [None]
